FAERS Safety Report 6911876-8 (Version None)
Quarter: 2010Q3

REPORT INFORMATION
  Report Type: 
  Country: None (occurrence: None)
  Receive Date: 20100806
  Receipt Date: 20070918
  Transmission Date: 20110219
  Serious: No
  Sender: FDA-Public Use
  Company Number: US-PFIZER INC-2007078685

PATIENT
  Sex: Male

DRUGS (2)
  1. DETROL LA [Suspect]
     Indication: HYPERTONIC BLADDER
     Route: 048
     Dates: start: 20070401
  2. PERCOCET [Concomitant]
     Indication: BACK PAIN
     Route: 048
     Dates: start: 20050101

REACTIONS (2)
  - CONSTIPATION [None]
  - HEARING IMPAIRED [None]
